FAERS Safety Report 4339917-5 (Version None)
Quarter: 2004Q2

REPORT INFORMATION
  Report Type: 
  Country: None (occurrence: None)
  Receive Date: 20040416
  Receipt Date: 20000110
  Transmission Date: 20050107
  Serious: Yes (Other)
  Sender: FDA-Public Use
  Company Number: US-GLAXOSMITHKLINE-A0319037A

PATIENT
  Age: 37 Year
  Sex: Male
  Weight: 117.91 kg

DRUGS (3)
  1. PAXIL [Suspect]
     Indication: ARTHRALGIA
     Dosage: 40MG PER DAY
     Route: 048
     Dates: start: 19980101
  2. PAXIL [Suspect]
     Dosage: 60MG PER DAY
     Route: 048
     Dates: start: 19980101
  3. ZYPREXA [Concomitant]

REACTIONS (6)
  - ABNORMAL BEHAVIOUR [None]
  - CONFUSIONAL STATE [None]
  - HALLUCINATION, AUDITORY [None]
  - HALLUCINATION, VISUAL [None]
  - INSOMNIA [None]
  - TREMOR [None]
